FAERS Safety Report 5533372-5 (Version None)
Quarter: 2007Q4

REPORT INFORMATION
  Report Type: 
  Country: None (occurrence: None)
  Receive Date: 20071204
  Receipt Date: 20071126
  Transmission Date: 20080405
  Serious: Yes (Other)
  Sender: FDA-Public Use
  Company Number: US-ELI_LILLY_AND_COMPANY-US200711006423

PATIENT
  Sex: Female

DRUGS (2)
  1. STRATTERA [Suspect]
     Dosage: UNK, UNK
     Route: 048
     Dates: start: 20041207
  2. STRATTERA [Suspect]
     Dosage: 60 MG, UNK
     Route: 048
     Dates: start: 20060601

REACTIONS (1)
  - BREAST CANCER [None]
